FAERS Safety Report 14144541 (Version 1)
Quarter: 2017Q4

REPORT INFORMATION
  Report Type: Spontaneous
  Country: US (occurrence: US)
  Receive Date: 20171031
  Receipt Date: 20171031
  Transmission Date: 20180321
  Serious: No
  Sender: FDA-Public Use
  Company Number: US-SHIRE-US201726437

PATIENT
  Sex: Female

DRUGS (1)
  1. GATTEX [Suspect]
     Active Substance: TEDUGLUTIDE\WATER
     Indication: SHORT-BOWEL SYNDROME
     Dosage: 0.229
     Route: 065
     Dates: start: 20170818

REACTIONS (9)
  - Constipation [Unknown]
  - Frequent bowel movements [Unknown]
  - Abdominal distension [Unknown]
  - Vomiting [Unknown]
  - Abdominal pain [Unknown]
  - Hot flush [Unknown]
  - Flatulence [Unknown]
  - Abdominal discomfort [Unknown]
  - Hypothyroidism [Unknown]
